FAERS Safety Report 6882823-2 (Version None)
Quarter: 2010Q3

REPORT INFORMATION
  Report Type: 
  Country: None (occurrence: None)
  Receive Date: 20100729
  Receipt Date: 20100722
  Transmission Date: 20110219
  Serious: Yes (Death)
  Sender: FDA-Public Use
  Company Number: FR-ROCHE-716915

PATIENT
  Sex: Male
  Weight: 60 kg

DRUGS (7)
  1. BLINDED BEVACIZUMAB [Suspect]
     Indication: GLIOBLASTOMA
     Dosage: FORMULATION: VIAL. LAST DOSE PRIOR TO THE EVENT: 07 JULY 2010.
     Route: 042
     Dates: start: 20100216
  2. TEMODAL [Suspect]
     Indication: GLIOBLASTOMA
     Dosage: LAST DOSE PRIOR TO THE EVENT ON 26 JUNE 2010.
     Route: 048
     Dates: start: 20100216
  3. LEVETIRACETAM [Concomitant]
     Dates: start: 20100109
  4. PREDNISOLONE [Concomitant]
     Dates: start: 20100708
  5. IDEOS [Concomitant]
     Dates: start: 20100526
  6. OMEPRAZOLE [Concomitant]
     Dates: start: 20100121
  7. POTASSIUM [Concomitant]
     Dates: start: 20100111

REACTIONS (1)
  - SUDDEN DEATH [None]
